FAERS Safety Report 19035763 (Version 2)
Quarter: 2021Q2

REPORT INFORMATION
  Report Type: Spontaneous
  Country: FR (occurrence: FR)
  Receive Date: 20210320
  Receipt Date: 20210421
  Transmission Date: 20210717
  Serious: Yes (Hospitalization)
  Sender: FDA-Public Use
  Company Number: FR-009507513-2103FRA004672

PATIENT
  Age: 65 Year
  Sex: Male
  Weight: 58 kg

DRUGS (1)
  1. KEYTRUDA [Suspect]
     Active Substance: PEMBROLIZUMAB
     Indication: BRONCHIAL CARCINOMA
     Dosage: 200 MILLIGRAM, CYCLICAL
     Route: 041
     Dates: start: 20200122, end: 20200625

REACTIONS (2)
  - Colitis [Recovered/Resolved with Sequelae]
  - Diarrhoea haemorrhagic [Recovered/Resolved with Sequelae]

NARRATIVE: CASE EVENT DATE: 20200701
